FAERS Safety Report 18307864 (Version 1)
Quarter: 2020Q3

REPORT INFORMATION
  Report Type: Spontaneous
  Country: CA (occurrence: CA)
  Receive Date: 20200924
  Receipt Date: 20200924
  Transmission Date: 20201103
  Serious: Yes (Other)
  Sender: FDA-Public Use
  Company Number: CA-ASTRAZENECA-2020SF19276

PATIENT
  Age: 34 Year
  Sex: Female
  Weight: 88 kg

DRUGS (7)
  1. CELEXA [Concomitant]
     Active Substance: CITALOPRAM HYDROBROMIDE
     Route: 065
  2. MIRAPEX [Concomitant]
     Active Substance: PRAMIPEXOLE DIHYDROCHLORIDE
     Route: 065
  3. MARVELON [Concomitant]
     Active Substance: DESOGESTREL\ETHINYL ESTRADIOL
     Route: 065
  4. NALTREXONE [Concomitant]
     Active Substance: NALTREXONE
     Route: 065
  5. TRAMADOL HYDROCHLORIDE. [Concomitant]
     Active Substance: TRAMADOL HYDROCHLORIDE
     Route: 065
  6. GABAPENTIN. [Concomitant]
     Active Substance: GABAPENTIN
     Route: 065
  7. OMEPRAZOLE. [Suspect]
     Active Substance: OMEPRAZOLE
     Indication: GASTROOESOPHAGEAL REFLUX DISEASE
     Route: 048

REACTIONS (9)
  - Anxiety [Recovering/Resolving]
  - Fatigue [Recovering/Resolving]
  - Anger [Recovering/Resolving]
  - Drug interaction [Recovering/Resolving]
  - Chest discomfort [Recovering/Resolving]
  - Restless legs syndrome [Recovering/Resolving]
  - Depression [Recovering/Resolving]
  - Serotonin syndrome [Recovering/Resolving]
  - Agitation [Recovering/Resolving]
